FAERS Safety Report 7131894-7 (Version None)
Quarter: 2010Q4

REPORT INFORMATION
  Report Type: 
  Country: None (occurrence: None)
  Receive Date: 20101202
  Receipt Date: 20101126
  Transmission Date: 20110411
  Serious: Yes (Life-Threatening, Hospitalization, Other)
  Sender: FDA-Public Use
  Company Number: AT-CELGENEUS-009-21880-10080898

PATIENT
  Age: 62 Year
  Sex: Female
  Weight: 63 kg

DRUGS (4)
  1. REVLIMID [Suspect]
     Indication: LYMPHOMA
     Route: 048
     Dates: start: 20100803, end: 20100811
  2. REVLIMID [Suspect]
     Route: 048
     Dates: start: 20100811
  3. PANTOLOC [Concomitant]
     Indication: DYSPEPSIA
     Route: 065
  4. MAGNESIUM VERLA [Concomitant]
     Route: 065

REACTIONS (1)
  - TUMOUR FLARE [None]
